FAERS Safety Report 5953047-8 (Version None)
Quarter: 2008Q4

REPORT INFORMATION
  Report Type: 
  Country: None (occurrence: None)
  Receive Date: 20081114
  Receipt Date: 20080925
  Transmission Date: 20090506
  Serious: Yes (Hospitalization)
  Sender: FDA-Public Use
  Company Number: US-BRISTOL-MYERS SQUIBB COMPANY-14347462

PATIENT
  Age: 56 Year
  Sex: Female
  Weight: 55 kg

DRUGS (3)
  1. IXEMPRA KIT [Suspect]
  2. XELODA [Concomitant]
  3. NEUPOGEN [Concomitant]

REACTIONS (2)
  - DEEP VEIN THROMBOSIS [None]
  - NEUTROPENIA [None]
